FAERS Safety Report 13579925 (Version 1)
Quarter: 2017Q2

REPORT INFORMATION
  Report Type: Spontaneous
  Country: US (occurrence: US)
  Receive Date: 20170524
  Receipt Date: 20170524
  Transmission Date: 20170830
  Serious: No
  Sender: FDA-Public Use
  Company Number: None

PATIENT
  Age: 57 Year
  Sex: Female

DRUGS (1)
  1. IBRANCE [Suspect]
     Active Substance: PALBOCICLIB
     Indication: BREAST CANCER FEMALE
     Dosage: 125MG QD FOR 21 DAYS OUT OF 28 DAYS PO
     Route: 048
     Dates: start: 20170503

REACTIONS (10)
  - Stomatitis [None]
  - Musculoskeletal pain [None]
  - Nausea [None]
  - Alopecia [None]
  - Fatigue [None]
  - Muscle spasms [None]
  - Constipation [None]
  - Bone pain [None]
  - Arthralgia [None]
  - Decreased appetite [None]

NARRATIVE: CASE EVENT DATE: 20170523
